FAERS Safety Report 4474424-0 (Version None)
Quarter: 2004Q4

REPORT INFORMATION
  Report Type: 
  Country: None (occurrence: None)
  Receive Date: 20041014
  Receipt Date: 20041005
  Transmission Date: 20050328
  Serious: Yes (Other)
  Sender: FDA-Public Use
  Company Number: JP-JNJFOC-20040900486

PATIENT
  Age: 73 Year
  Sex: Male

DRUGS (4)
  1. ITRIZOLE [Suspect]
     Indication: ONYCHOMYCOSIS
     Route: 049
     Dates: start: 20040802, end: 20040806
  2. NIFEDIPINE [Interacting]
     Indication: HYPERTENSION
     Route: 049
  3. FLAVOXATE HYDROCHLORIDE [Concomitant]
     Route: 049
     Dates: start: 20040707
  4. TERAZOSIN HYDROCHLORIDE [Concomitant]
     Route: 049

REACTIONS (5)
  - BLOOD POTASSIUM DECREASED [None]
  - CARDIAC FAILURE CONGESTIVE [None]
  - CARDIAC MURMUR [None]
  - DRUG INTERACTION [None]
  - RENAL IMPAIRMENT [None]
